FAERS Safety Report 19513645 (Version 1)
Quarter: 2021Q3

REPORT INFORMATION
  Report Type: Spontaneous
  Country: CA (occurrence: CA)
  Receive Date: 20210709
  Receipt Date: 20210709
  Transmission Date: 20211014
  Serious: Yes (Hospitalization, Other)
  Sender: FDA-Public Use
  Company Number: CA-PFIZER INC-2021774473

PATIENT
  Age: 40 Year
  Sex: Female

DRUGS (3)
  1. FILGRASTIM [Suspect]
     Active Substance: FILGRASTIM
     Indication: NEUTROPENIA
     Dosage: UNK
     Route: 065
  2. FILGRASTIM [Suspect]
     Active Substance: FILGRASTIM
     Dosage: 300 UG, 1X/DAY
     Route: 065
  3. FILGRASTIM [Suspect]
     Active Substance: FILGRASTIM
     Dosage: 480 UG, 1X/DAY
     Route: 065

REACTIONS (7)
  - Activated partial thromboplastin time prolonged [Recovered/Resolved]
  - COVID-19 [Recovered/Resolved]
  - Coagulopathy [Recovered/Resolved]
  - Thrombocytopenia [Recovered/Resolved]
  - Maternal exposure during pregnancy [Recovered/Resolved]
  - Postpartum haemorrhage [Recovered/Resolved]
  - Febrile neutropenia [Recovered/Resolved]
